FAERS Safety Report 4816939-9 (Version None)
Quarter: 2005Q4

REPORT INFORMATION
  Report Type: 
  Country: None (occurrence: None)
  Receive Date: 20051031
  Receipt Date: 20051031
  Transmission Date: 20060501
  Serious: Yes (Hospitalization)
  Sender: FDA-Public Use
  Company Number: None

PATIENT
  Age: 83 Year
  Sex: Male
  Weight: 128.368 kg

DRUGS (18)
  1. SALSALATE 500 MG BID PRN WITH FOOD [Suspect]
     Indication: PAIN
  2. ASPIRIN [Suspect]
     Indication: CEREBROVASCULAR ACCIDENT
  3. CLOPIDOGREL 75 MG DAILY [Suspect]
     Indication: CORONARY ARTERY DISEASE
  4. CLOPIDOGREL BISULFATE [Concomitant]
  5. ASPIRIN [Concomitant]
  6. ATENOLOL [Concomitant]
  7. NITRAGLYCERIN [Concomitant]
  8. STATIN [Concomitant]
  9. FUROSEMIDE [Concomitant]
  10. AMMONIUM LACTATE 5% LOTION [Concomitant]
  11. RANITIDINE HCL [Concomitant]
  12. SYNTHROID [Concomitant]
  13. SALSALATE [Concomitant]
  14. HYDROCORTISONE [Concomitant]
  15. HYDROCORTISONE ACETATE [Concomitant]
  16. POTASSIUM CL [Concomitant]
  17. FOLIC ACID [Concomitant]
  18. MULTIVITAMIN/MINERTHERAPEUT [Concomitant]

REACTIONS (3)
  - GASTROINTESTINAL HAEMORRHAGE [None]
  - HYPOTENSION [None]
  - SYNCOPE [None]
